FAERS Safety Report 6381654-X (Version None)
Quarter: 2009Q3

REPORT INFORMATION
  Report Type: 
  Country: None (occurrence: None)
  Receive Date: 20090930
  Receipt Date: 20090921
  Transmission Date: 20100115
  Serious: Yes (Hospitalization)
  Sender: FDA-Public Use
  Company Number: US-BIOGENIDEC-2009BI030708

PATIENT
  Age: 46 Year
  Sex: Female

DRUGS (2)
  1. AVONEX [Suspect]
     Indication: MULTIPLE SCLEROSIS
     Route: 030
     Dates: start: 20021116, end: 20060101
  2. AVONEX [Suspect]
     Route: 030
     Dates: start: 20060101, end: 20061101

REACTIONS (2)
  - CONVULSION [None]
  - MYOCARDIAL INFARCTION [None]
